FAERS Safety Report 7918656-5 (Version None)
Quarter: 2011Q4

REPORT INFORMATION
  Report Type: 
  Country: None (occurrence: None)
  Receive Date: 20111116
  Receipt Date: 20111027
  Transmission Date: 20120403
  Serious: Yes (Other)
  Sender: FDA-Public Use
  Company Number: US-SANOFI-AVENTIS-2011SA067669

PATIENT

DRUGS (2)
  1. SOLOSTAR [Suspect]
  2. LANTUS [Suspect]
     Route: 051

REACTIONS (4)
  - PRODUCT QUALITY ISSUE [None]
  - DEVICE MALFUNCTION [None]
  - DEVICE DAMAGE [None]
  - DEVICE BREAKAGE [None]
